FAERS Safety Report 5938520-0 (Version None)
Quarter: 2008Q4

REPORT INFORMATION
  Report Type: 
  Country: None (occurrence: None)
  Receive Date: 20081103
  Receipt Date: 20081023
  Transmission Date: 20090506
  Serious: Yes (Other)
  Sender: FDA-Public Use
  Company Number: PHHY2008GB20180

PATIENT
  Sex: Male

DRUGS (5)
  1. CLOZARIL [Suspect]
     Indication: SCHIZOPHRENIA
     Dosage: UNK
     Route: 048
     Dates: start: 20080902, end: 20080904
  2. RISPERDAL [Concomitant]
     Dosage: 2.5 MG
     Route: 048
  3. ASPIRIN [Concomitant]
     Dosage: 300 MG
     Route: 048
  4. ARIPIPRAZOLE [Concomitant]
     Dosage: 15 MG
     Route: 048
  5. LANSOPRAZOLE [Concomitant]
     Dosage: 15 MG
     Route: 048

REACTIONS (4)
  - ATRIAL FIBRILLATION [None]
  - BUNDLE BRANCH BLOCK [None]
  - RESTLESSNESS [None]
  - TACHYCARDIA [None]
